FAERS Safety Report 7541355-9 (Version None)
Quarter: 2011Q2

REPORT INFORMATION
  Report Type: 
  Country: None (occurrence: None)
  Receive Date: 20110613
  Receipt Date: 20110604
  Transmission Date: 20111010
  Serious: Yes (Hospitalization, Other)
  Sender: FDA-Public Use
  Company Number: ES-PAR PHARMACEUTICAL, INC-2011SCPR003047

PATIENT
  Age: 68 Year
  Sex: Female

DRUGS (4)
  1. LENALIDOMIDE [Suspect]
     Indication: MULTIPLE MYELOMA
     Dosage: 25 MG/DAY
     Route: 065
  2. LENALIDOMIDE [Suspect]
     Dosage: 15 MG/DAY
     Route: 065
  3. LENALIDOMIDE [Suspect]
     Dosage: 10 MG/DAY
     Route: 065
  4. DEXAMETHASONE [Suspect]
     Indication: MULTIPLE MYELOMA
     Dosage: UNK, UNKNOWN
     Route: 065

REACTIONS (3)
  - FEBRILE NEUTROPENIA [None]
  - HAEMATOTOXICITY [None]
  - ADRENAL INSUFFICIENCY [None]
